FAERS Safety Report 16515916 (Version 1)
Quarter: 2019Q3

REPORT INFORMATION
  Report Type: Spontaneous
  Country: US (occurrence: US)
  Receive Date: 20190522
  Receipt Date: 20190522
  Transmission Date: 20191004
  Serious: No
  Sender: FDA-Public Use
  Company Number: None

PATIENT
  Age: 66 Year
  Sex: Female

DRUGS (1)
  1. TALTZ [Suspect]
     Active Substance: IXEKIZUMAB
     Indication: PSORIASIS
     Dosage: INJECT 80MG (1 PEN) SUBCUTANEOUSLY EVERY 4 WEEKS AS DIRECTED ?
     Route: 058
     Dates: start: 201904

REACTIONS (6)
  - Nausea [None]
  - Headache [None]
  - Device malfunction [None]
  - Dyspepsia [None]
  - Product dose omission [None]
  - Pyrexia [None]
